FAERS Safety Report 7910047-6 (Version None)
Quarter: 2011Q4

REPORT INFORMATION
  Report Type: 
  Country: None (occurrence: None)
  Receive Date: 20111111
  Receipt Date: 20111108
  Transmission Date: 20120403
  Serious: Yes (Death, Hospitalization)
  Sender: FDA-Public Use
  Company Number: US-CELGENEUS-163-50794-11031917

PATIENT
  Sex: Male

DRUGS (2)
  1. VIDAZA [Suspect]
     Route: 041
     Dates: start: 20101018, end: 20110114
  2. TRANSFUSION [Concomitant]
     Indication: PANCYTOPENIA
     Route: 041

REACTIONS (3)
  - MYELODYSPLASTIC SYNDROME [None]
  - HAEMORRHAGE [None]
  - INFECTION [None]
